FAERS Safety Report 4965428-X (Version None)
Quarter: 2006Q2

REPORT INFORMATION
  Report Type: 
  Country: None (occurrence: None)
  Receive Date: 20060406
  Receipt Date: 20051013
  Transmission Date: 20061013
  Serious: Yes (Life-Threatening, Hospitalization, Disabling)
  Sender: FDA-Public Use
  Company Number: PL-MERCK-0510POL00011

PATIENT
  Sex: Female

DRUGS (2)
  1. VIOXX [Suspect]
     Indication: OSTEOARTHRITIS
     Route: 048
     Dates: start: 20010823, end: 20040201
  2. VIOXX [Suspect]
     Indication: SPINAL OSTEOARTHRITIS
     Route: 048
     Dates: start: 20010823, end: 20040201

REACTIONS (18)
  - ACUTE MYOCARDIAL INFARCTION [None]
  - ANXIETY [None]
  - ATRIOVENTRICULAR BLOCK COMPLETE [None]
  - BALANCE DISORDER [None]
  - CARDIAC ARREST [None]
  - CARDIAC DISORDER [None]
  - CARDIOVASCULAR DISORDER [None]
  - DEMENTIA [None]
  - DEPRESSION [None]
  - DISORIENTATION [None]
  - GENERAL PHYSICAL HEALTH DETERIORATION [None]
  - HEADACHE [None]
  - HYPERTENSIVE CRISIS [None]
  - ILIUM FRACTURE [None]
  - MITRAL VALVE INCOMPETENCE [None]
  - MYOCARDIAL ISCHAEMIA [None]
  - TRICUSPID VALVE INCOMPETENCE [None]
  - VENTRICULAR FIBRILLATION [None]
